FAERS Safety Report 9559923 (Version 1)
Quarter: 2013Q3

REPORT INFORMATION
  Report Type: Spontaneous
  Country: US (occurrence: US)
  Receive Date: 20130927
  Receipt Date: 20130927
  Transmission Date: 20140515
  Serious: No
  Sender: FDA-Public Use
  Company Number: US-PFIZER INC-2013275117

PATIENT
  Age: 54 Year
  Sex: Male

DRUGS (4)
  1. VIAGRA [Suspect]
     Dosage: 100 MG, AS NEEDED
  2. NORCO [Concomitant]
     Dosage: AT 10/325 MG,
  3. ELAVIL [Concomitant]
     Dosage: 25 MG, UNK
  4. METFORMIN [Concomitant]
     Dosage: UNK

REACTIONS (3)
  - Asthenia [Unknown]
  - Back pain [Unknown]
  - Arthralgia [Unknown]
